FAERS Safety Report 10967869 (Version 1)
Quarter: 2015Q1

REPORT INFORMATION
  Report Type: Spontaneous
  Country: US (occurrence: US)
  Receive Date: 20150330
  Receipt Date: 20150330
  Transmission Date: 20150721
  Serious: Yes (Other)
  Sender: FDA-Public Use
  Company Number: US-GLAXOSMITHKLINE-US2015040456

PATIENT
  Sex: Male

DRUGS (22)
  1. TUMS [Concomitant]
     Active Substance: CALCIUM CARBONATE
  2. ALBUTEROL INHALER [Concomitant]
     Active Substance: ALBUTEROL
  3. CINNAMON CAPSULES [Concomitant]
  4. DOCUSATE [Concomitant]
     Active Substance: DOCUSATE
  5. ALEVE [Concomitant]
     Active Substance: NAPROXEN SODIUM
  6. ZOMETA [Concomitant]
     Active Substance: ZOLEDRONIC ACID
  7. LISINOPRIL. [Concomitant]
     Active Substance: LISINOPRIL
  8. OMEPRAZOLE. [Concomitant]
     Active Substance: OMEPRAZOLE
  9. VITAMIN B12 [Concomitant]
     Active Substance: CYANOCOBALAMIN
  10. VITAMIN B6 [Concomitant]
     Active Substance: PYRIDOXINE HYDROCHLORIDE
  11. VITAMIN D3 [Concomitant]
     Active Substance: CHOLECALCIFEROL
  12. TYLENOL ARTHRITIS PAIN [Concomitant]
     Active Substance: ACETAMINOPHEN
  13. ASPIRIN. [Concomitant]
     Active Substance: ASPIRIN
  14. OXYCONTIN [Concomitant]
     Active Substance: OXYCODONE HYDROCHLORIDE
  15. NOVOLOG [Concomitant]
     Active Substance: INSULIN ASPART
  16. ALLEGRA [Concomitant]
     Active Substance: FEXOFENADINE HYDROCHLORIDE
  17. FINASTERIDE. [Concomitant]
     Active Substance: FINASTERIDE
  18. LANTUS [Concomitant]
     Active Substance: INSULIN GLARGINE
  19. GABAPENTIN. [Concomitant]
     Active Substance: GABAPENTIN
  20. METAMUCIL [Concomitant]
     Active Substance: PLANTAGO SEED
  21. VOTRIENT [Suspect]
     Active Substance: PAZOPANIB HYDROCHLORIDE
     Indication: METASTATIC RENAL CELL CARCINOMA
     Dosage: 200 MG
     Route: 048
     Dates: start: 20141117, end: 20150211
  22. RANITIDINE [Concomitant]
     Active Substance: RANITIDINE\RANITIDINE HYDROCHLORIDE

REACTIONS (1)
  - Malignant neoplasm progression [Unknown]
